FAERS Safety Report 20720928 (Version 1)
Quarter: 2022Q2

REPORT INFORMATION
  Report Type: Spontaneous
  Country: RU (occurrence: None)
  Receive Date: 20220418
  Receipt Date: 20220418
  Transmission Date: 20220720
  Serious: Yes (Other)
  Sender: FDA-Public Use
  Company Number: RU-ROCHE-3070858

PATIENT
  Age: 66 Year
  Sex: Female

DRUGS (1)
  1. ATEZOLIZUMAB [Suspect]
     Active Substance: ATEZOLIZUMAB
     Indication: Non-small cell lung cancer
     Route: 041

REACTIONS (1)
  - Metastases to spine [Unknown]
